FAERS Safety Report 5966231-4 (Version None)
Quarter: 2008Q4

REPORT INFORMATION
  Report Type: 
  Country: None (occurrence: None)
  Receive Date: 20081125
  Receipt Date: 20081120
  Transmission Date: 20090506
  Serious: Yes (Hospitalization)
  Sender: FDA-Public Use
  Company Number: JP-AVENTIS-200813623JP

PATIENT
  Age: 81 Year
  Sex: Female

DRUGS (2)
  1. TAXOTERE [Suspect]
     Indication: LUNG ADENOCARCINOMA
     Route: 041
  2. RADIOTHERAPY [Suspect]
     Dosage: DOSE: 30GY/TOTAL

REACTIONS (2)
  - ALTERED STATE OF CONSCIOUSNESS [None]
  - LEUKOENCEPHALOPATHY [None]
